FAERS Safety Report 9493354 (Version 1)
Quarter: 2013Q3

REPORT INFORMATION
  Report Type: Spontaneous
  Country: FR (occurrence: FR)
  Receive Date: 20130902
  Receipt Date: 20130902
  Transmission Date: 20140515
  Serious: Yes (Hospitalization)
  Sender: FDA-Public Use
  Company Number: PHHY2013FR094870

PATIENT
  Age: 43 Year
  Sex: Female

DRUGS (3)
  1. RITALINE [Suspect]
     Indication: DRUG DEPENDENCE
     Dosage: UNK UKN, UNK
     Route: 042
  2. CONCERTA LP [Suspect]
     Dosage: UNK UKN, UNK
     Route: 042
  3. METHADONE [Concomitant]
     Dosage: UNK UKN, UNK

REACTIONS (2)
  - Skin necrosis [Unknown]
  - Drug abuse [Unknown]
